FAERS Safety Report 15761884 (Version 1)
Quarter: 2018Q4

REPORT INFORMATION
  Report Type: Report from Study
  Country: BR (occurrence: BR)
  Receive Date: 20181226
  Receipt Date: 20181226
  Transmission Date: 20190205
  Serious: Yes (Other)
  Sender: FDA-Public Use
  Company Number: PHHY2018BR195409

PATIENT
  Sex: Female

DRUGS (3)
  1. ENTRESTO [Suspect]
     Active Substance: SACUBITRIL\VALSARTAN
     Indication: HYPERTENSION
     Dosage: UNK (24.3 MG SACUBITRIL AND 25.7 MG VALSARTAN)
     Route: 065
  2. EXFORGE HCT [Suspect]
     Active Substance: AMLODIPINE BESYLATE\HYDROCHLOROTHIAZIDE\VALSARTAN
     Indication: PRODUCT USED FOR UNKNOWN INDICATION
     Dosage: (AMLODIPINE 5 MG, HYDROCHLOROTHIAZIDE 12.5MG, VALSARTAN 160MG)
     Route: 065
  3. ENTRESTO [Suspect]
     Active Substance: SACUBITRIL\VALSARTAN
     Dosage: 3 DF, QD  (SACUBITRIL 48.6 MG, VALSARTAN 51.4 MG), (2 DF MORNING AND 1 DF NIGHT)
     Route: 065

REACTIONS (4)
  - Product use in unapproved indication [Unknown]
  - Thrombosis [Unknown]
  - Peripheral swelling [Unknown]
  - Blood pressure abnormal [Unknown]
